FAERS Safety Report 25962929 (Version 1)
Quarter: 2025Q4

REPORT INFORMATION
  Report Type: Spontaneous
  Country: EU (occurrence: EU)
  Receive Date: 20251027
  Receipt Date: 20251027
  Transmission Date: 20260118
  Serious: Yes (Other)
  Sender: TEVA
  Company Number: None

PATIENT
  Age: 84 Year
  Sex: Female

DRUGS (9)
  1. MIRTAZAPINE [Suspect]
     Active Substance: MIRTAZAPINE
     Indication: Wrong product administered
     Route: 048
     Dates: start: 20250809, end: 20250809
  2. TAMSULOSIN [Suspect]
     Active Substance: TAMSULOSIN
     Indication: Wrong product administered
     Dosage: TAMSULOSIN HYDROCHLORIDE
     Route: 048
     Dates: start: 20250809, end: 20250809
  3. POTASSIUM CHLORIDE [Concomitant]
     Active Substance: POTASSIUM CHLORIDE
     Indication: Wrong product administered
     Route: 048
     Dates: start: 20250809, end: 20250809
  4. RISPERDAL [Suspect]
     Active Substance: RISPERIDONE
     Indication: Product used for unknown indication
     Dosage: FILM-COATED TABLET, SCORED
     Route: 065
  5. GABAPENTIN [Suspect]
     Active Substance: GABAPENTIN
     Indication: Wrong product administered
     Route: 048
     Dates: start: 20250809, end: 20250809
  6. MELATONIN [Suspect]
     Active Substance: MELATONIN
     Indication: Wrong product administered
     Route: 048
     Dates: start: 20250809, end: 20250809
  7. CLOPIDOGREL BESILATE [Suspect]
     Active Substance: CLOPIDOGREL BESILATE
     Indication: Product used for unknown indication
     Route: 065
  8. ZOPICLONE [Suspect]
     Active Substance: ZOPICLONE
     Indication: Product used for unknown indication
     Route: 065
  9. LANSOPRAZOLE [Suspect]
     Active Substance: LANSOPRAZOLE
     Indication: Product used for unknown indication
     Dosage: GASTRO-RESISTANT MICROGRANULES IN CAPSULES
     Route: 065

REACTIONS (2)
  - Depressed level of consciousness [Recovered/Resolved]
  - Wrong product administered [Recovered/Resolved]

NARRATIVE: CASE EVENT DATE: 20250809
